FAERS Safety Report 7948998-9 (Version None)
Quarter: 2011Q4

REPORT INFORMATION
  Report Type: 
  Country: None (occurrence: None)
  Receive Date: 20111125
  Receipt Date: 20111114
  Transmission Date: 20120403
  Serious: Yes (Hospitalization)
  Sender: FDA-Public Use
  Company Number: 1107664

PATIENT
  Age: 23 Year
  Sex: Male
  Weight: 78.6 kg

DRUGS (23)
  1. (MEPERON /011181501/) [Concomitant]
  2. OMEPRAZOLE [Concomitant]
  3. (FAMVIR /01226201/) [Concomitant]
  4. DILAUDID [Suspect]
     Indication: PAIN
     Dosage: 2 MG, Q3H, ORAL
     Route: 048
     Dates: start: 20110628, end: 20111016
  5. (HYDROCORTISONE W/LIDOCAINE) [Concomitant]
  6. NEUPOGEN [Concomitant]
  7. POLYETHYLENE GLYCOL [Concomitant]
  8. (SENNOSIDE A+B) [Concomitant]
  9. HEPARIN LOCK-FLUSH [Concomitant]
  10. MORPHINE SUL INJ [Concomitant]
  11. CELEXA [Suspect]
     Indication: DEPRESSION
     Dates: start: 20110331
  12. SCOPOLAMINE [Suspect]
     Indication: NAUSEA
     Dosage: 1.5 MG, EVERY 72 HOURS,TRANSDERMAL
     Route: 062
     Dates: start: 20111006, end: 20111014
  13. COLACE [Concomitant]
  14. (CHLOROHEXIDINE) [Concomitant]
  15. KYTRIL [Suspect]
     Indication: NAUSEA
     Dosage: 1 MG, 1 X/DAY, ORAL
     Route: 048
     Dates: start: 20111006
  16. LORATADINE [Concomitant]
  17. MARINOL [Suspect]
     Indication: NAUSEA
     Dosage: 5 MG, TID AS NEEDED, ORAL
     Route: 048
     Dates: start: 20110404, end: 20111016
  18. NYSTATIN [Concomitant]
  19. CIPROFLOXACIN [Concomitant]
  20. FLUCONAZOLE [Concomitant]
  21. DEMEROL [Suspect]
     Indication: PAIN
     Dosage: EVERY 96 HOURAS AS NEEDED
     Dates: start: 20111016
  22. ATIVAN [Concomitant]
     Indication: NAUSEA
     Dosage: 1 MG, Q6H AS NEEDED, ORAL
     Route: 048
     Dates: start: 20110311
  23. CONCERTA [Concomitant]

REACTIONS (15)
  - FEBRILE NEUTROPENIA [None]
  - FUNGAL INFECTION [None]
  - MUSCLE SPASMS [None]
  - CONFUSIONAL STATE [None]
  - VOMITING [None]
  - CLOSTRIDIUM DIFFICILE COLITIS [None]
  - PNEUMONIA [None]
  - NAUSEA [None]
  - SINUS DISORDER [None]
  - HALLUCINATION [None]
  - CHILLS [None]
  - BACTERIAL INFECTION [None]
  - DYSKINESIA [None]
  - DIARRHOEA [None]
  - ABDOMINAL PAIN [None]
